FAERS Safety Report 5584237-4 (Version None)
Quarter: 2008Q1

REPORT INFORMATION
  Report Type: 
  Country: None (occurrence: None)
  Receive Date: 20080108
  Receipt Date: 20080104
  Transmission Date: 20080703
  Serious: Yes (Hospitalization)
  Sender: FDA-Public Use
  Company Number: A0701775A

PATIENT
  Age: 49 Year
  Sex: Male

DRUGS (2)
  1. LAMICTAL [Suspect]
     Indication: DEPRESSION
     Dosage: 100MG UNKNOWN
     Route: 048
     Dates: start: 20071110, end: 20071222
  2. AROXAT [Suspect]
     Indication: DEPRESSION
     Dosage: 20MGD PER DAY
     Route: 048

REACTIONS (5)
  - DRUG RASH WITH EOSINOPHILIA AND SYSTEMIC SYMPTOMS [None]
  - HEADACHE [None]
  - LYMPHADENOPATHY [None]
  - PRURITUS [None]
  - PYREXIA [None]
